FAERS Safety Report 18296635 (Version 1)
Quarter: 2020Q3

REPORT INFORMATION
  Report Type: Spontaneous
  Country: GB (occurrence: GB)
  Receive Date: 20200922
  Receipt Date: 20200922
  Transmission Date: 20201103
  Serious: Yes (Death, Hospitalization, Other)
  Sender: FDA-Public Use
  Company Number: NVSC2020GB257623

PATIENT
  Sex: Male

DRUGS (1)
  1. ENTRESTO [Suspect]
     Active Substance: SACUBITRIL\VALSARTAN
     Indication: PRODUCT USED FOR UNKNOWN INDICATION
     Dosage: UNK (STARTED MAR)
     Route: 065

REACTIONS (4)
  - Brain injury [Unknown]
  - Cardiac arrest [Fatal]
  - Acute kidney injury [Unknown]
  - Hyperkalaemia [Fatal]

NARRATIVE: CASE EVENT DATE: 20200812
